FAERS Safety Report 26212357 (Version 1)
Quarter: 2025Q4

REPORT INFORMATION
  Report Type: Spontaneous
  Country: IN (occurrence: IN)
  Receive Date: 20251230
  Receipt Date: 20251230
  Transmission Date: 20260118
  Serious: Yes (Other)
  Sender: PADAGIS
  Company Number: IN-PADAGIS-2025PAD01571

PATIENT

DRUGS (1)
  1. IMIQUIMOD [Suspect]
     Active Substance: IMIQUIMOD
     Indication: Anogenital warts
     Dosage: UNK
     Route: 061

REACTIONS (1)
  - Cytokine release syndrome [Recovered/Resolved]
